FAERS Safety Report 5109839-0 (Version None)
Quarter: 2006Q3

REPORT INFORMATION
  Report Type: 
  Country: None (occurrence: None)
  Receive Date: 20060918
  Receipt Date: 20060918
  Transmission Date: 20061208
  Serious: Yes (Other)
  Sender: FDA-Public Use
  Company Number: None

PATIENT
  Age: 10 Year
  Sex: Male
  Weight: 45.3597 kg

DRUGS (4)
  1. CLARITIN REDITABS [Suspect]
     Indication: ASTHMA
     Dosage: 10 MG   ONCE A DAY
     Dates: start: 20020401, end: 20020401
  2. CLARITIN REDITABS [Suspect]
     Indication: HYPERSENSITIVITY
     Dosage: 10 MG   ONCE A DAY
     Dates: start: 20020401, end: 20020401
  3. CLARITIN REDITABS [Suspect]
     Indication: ASTHMA
     Dosage: 10 MG   ONCE A DAY
     Dates: start: 20060904, end: 20060909
  4. CLARITIN REDITABS [Suspect]
     Indication: HYPERSENSITIVITY
     Dosage: 10 MG   ONCE A DAY
     Dates: start: 20060904, end: 20060909

REACTIONS (1)
  - HALLUCINATION [None]
